FAERS Safety Report 6609659-1 (Version None)
Quarter: 2010Q1

REPORT INFORMATION
  Report Type: 
  Country: None (occurrence: None)
  Receive Date: 20100302
  Receipt Date: 20100222
  Transmission Date: 20100710
  Serious: Yes (Hospitalization)
  Sender: FDA-Public Use
  Company Number: US-ASTRAZENECA-2008UW26838

PATIENT
  Age: 59 Year
  Sex: Female

DRUGS (5)
  1. METOPROLOL SUCCINATE [Suspect]
     Indication: MYOCARDIAL INFARCTION
     Dosage: BY PAR - 50 MG DAILY
     Route: 048
     Dates: start: 19950101, end: 20100214
  2. METOPROLOL SUCCINATE [Suspect]
     Dosage: BY WATSON - 50 MG DAILY
     Route: 048
     Dates: start: 20100215, end: 20100219
  3. METOPROLOL SUCCINATE [Suspect]
     Dosage: BY PAR - 50 MG DAILY
     Route: 048
     Dates: start: 20100220
  4. LEVOTHYROXINE SODIUM [Concomitant]
     Indication: THYROID DISORDER
  5. ASPIRIN [Concomitant]

REACTIONS (4)
  - BLOOD PRESSURE INCREASED [None]
  - COELIAC DISEASE [None]
  - DIZZINESS [None]
  - PRESYNCOPE [None]
